FAERS Safety Report 8046171-X (Version None)
Quarter: 2012Q1

REPORT INFORMATION
  Report Type: 
  Country: None (occurrence: None)
  Receive Date: 20120113
  Receipt Date: 20111114
  Transmission Date: 20120608
  Serious: No
  Sender: FDA-Public Use
  Company Number: US-ROXANE LABORATORIES, INC.-2011-EU-00329GD

PATIENT
  Age: 10 Year
  Sex: Male

DRUGS (5)
  1. LITHIUM CARBONATE [Suspect]
     Indication: BIPOLAR DISORDER
     Dosage: 1800 MG
     Route: 048
  2. CLONIDINE [Suspect]
     Dosage: 0.3 MG
     Route: 048
  3. RISPERIDONE [Suspect]
     Dosage: 4 MG
     Route: 048
  4. FAMOTIDINE [Suspect]
     Dosage: 40 MG
     Route: 048
  5. MELATONIN [Suspect]
     Dosage: 3 MG
     Route: 048

REACTIONS (2)
  - DYSPHEMIA [None]
  - DRUG INTERACTION [None]
